FAERS Safety Report 9965143 (Version 1)
Quarter: 2014Q1

REPORT INFORMATION
  Report Type: Report from Study
  Country: US (occurrence: US)
  Receive Date: 20140305
  Receipt Date: 20140305
  Transmission Date: 20141002
  Serious: No
  Sender: FDA-Public Use
  Company Number: US-ABBVIE-13P-163-1124233-00

PATIENT
  Sex: Male

DRUGS (6)
  1. HUMIRA [Suspect]
     Indication: COLITIS ULCERATIVE
     Dates: start: 20130301, end: 20130524
  2. PREDNISONE [Concomitant]
     Indication: PRODUCT USED FOR UNKNOWN INDICATION
  3. LIALDA [Concomitant]
     Indication: PRODUCT USED FOR UNKNOWN INDICATION
  4. AZATHIOPRINE [Concomitant]
     Indication: PRODUCT USED FOR UNKNOWN INDICATION
  5. UNKNOWN STEROIDS [Concomitant]
     Indication: PRODUCT USED FOR UNKNOWN INDICATION
  6. NICODERM [Concomitant]
     Indication: TOBACCO USER

REACTIONS (1)
  - Colitis ulcerative [Recovering/Resolving]
